FAERS Safety Report 10084396 (Version 2)
Quarter: 2014Q2

REPORT INFORMATION
  Report Type: Report from Study
  Country: JP (occurrence: JP)
  Receive Date: 20140417
  Receipt Date: 20140506
  Transmission Date: 20141212
  Serious: Yes (Other)
  Sender: FDA-Public Use
  Company Number: JP-ACTELION-A-CH2014-97633

PATIENT
  Age: 67 Year
  Sex: Female
  Weight: 39.2 kg

DRUGS (13)
  1. TRACLEER [Suspect]
     Indication: PULMONARY ARTERIAL HYPERTENSION
     Dosage: 62.5 MG, OD
     Route: 048
     Dates: start: 20081113, end: 20081113
  2. TRACLEER [Suspect]
     Dosage: 31.25 MG, QD
     Route: 048
     Dates: start: 20081107, end: 20081107
  3. TRACLEER [Suspect]
     Dosage: 31.25 MG, BID
     Route: 048
     Dates: start: 20081108, end: 20081111
  4. TRACLEER [Suspect]
     Dosage: 62.5 MG, BID
     Route: 048
     Dates: start: 20081112, end: 20081112
  5. TRACLEER [Suspect]
     Dosage: 31.25 MG, BID
     Route: 048
     Dates: start: 20081114, end: 20090106
  6. OXYGEN [Concomitant]
  7. BERAPROST SODIUM [Concomitant]
  8. FUROSEMIDE [Concomitant]
  9. SPIRONOLACTONE [Concomitant]
  10. DIGOXIN [Concomitant]
  11. AMLODIPINE BESILATE [Concomitant]
  12. POTASSIUM L ASPARTATE K [Concomitant]
  13. THYROID [Concomitant]

REACTIONS (3)
  - Pancytopenia [Recovering/Resolving]
  - Blood pressure decreased [Recovered/Resolved]
  - Anaemia [Not Recovered/Not Resolved]
